FAERS Safety Report 17539328 (Version 3)
Quarter: 2020Q1

REPORT INFORMATION
  Report Type: Spontaneous
  Country: US (occurrence: US)
  Receive Date: 20200313
  Receipt Date: 20200321
  Transmission Date: 20200409
  Serious: No
  Sender: FDA-Public Use
  Company Number: US-TORRENT-00010099

PATIENT
  Age: 81 Year
  Sex: Female
  Weight: 68 kg

DRUGS (6)
  1. EZETIMIBE. [Concomitant]
     Active Substance: EZETIMIBE
     Indication: PRODUCT USED FOR UNKNOWN INDICATION
     Dosage: UNKNOWN
  2. LOSARTAN. [Suspect]
     Active Substance: LOSARTAN
     Indication: HYPERTENSION
     Dosage: ONCE DAILY
     Route: 048
     Dates: start: 2017
  3. LOSARTAN. [Suspect]
     Active Substance: LOSARTAN
     Indication: HYPERTENSION
     Dosage: HALF TABLET 100 MG
  4. ZETIA [Concomitant]
     Active Substance: EZETIMIBE
     Indication: PRODUCT USED FOR UNKNOWN INDICATION
     Dosage: UNKNOWN
  5. SIMVASTATIN. [Concomitant]
     Active Substance: SIMVASTATIN
     Indication: PRODUCT USED FOR UNKNOWN INDICATION
     Dosage: UNKNOWN
  6. FAMOTIDINE. [Concomitant]
     Active Substance: FAMOTIDINE
     Indication: PRODUCT USED FOR UNKNOWN INDICATION
     Dosage: UNKNOWN

REACTIONS (3)
  - Oral mucosal exfoliation [Not Recovered/Not Resolved]
  - Tongue exfoliation [Not Recovered/Not Resolved]
  - Lip exfoliation [Not Recovered/Not Resolved]

NARRATIVE: CASE EVENT DATE: 2019
